FAERS Safety Report 25917394 (Version 2)
Quarter: 2025Q4

REPORT INFORMATION
  Report Type: Spontaneous
  Country: AU (occurrence: AU)
  Receive Date: 20251014
  Receipt Date: 20251126
  Transmission Date: 20260118
  Serious: Yes (Hospitalization, Other)
  Sender: BEIGENE
  Company Number: AU-BEIGENE-BGN-2025-017376

PATIENT
  Age: 79 Year
  Sex: Male

DRUGS (8)
  1. BRUKINSA [Suspect]
     Active Substance: ZANUBRUTINIB
     Indication: Chronic lymphocytic leukaemia
     Dosage: 160 MILLIGRAM, BID
     Dates: start: 202409
  2. INSULIN NOS [Concomitant]
     Active Substance: INSULIN NOS
  3. LEVODOPA [Concomitant]
     Active Substance: LEVODOPA
     Dosage: 100/25MG TDS
  4. TRAVOPROST [Concomitant]
     Active Substance: TRAVOPROST
  5. TAMSULOSIN [Concomitant]
     Active Substance: TAMSULOSIN
  6. BRIMONIDINE [Concomitant]
     Active Substance: BRIMONIDINE TARTRATE
  7. ATORVASTATIN [Concomitant]
     Active Substance: ATORVASTATIN
     Dosage: 40 UNK
  8. AMLODIPINE [Concomitant]
     Active Substance: AMLODIPINE BESYLATE
     Dosage: 5 MILLIGRAM

REACTIONS (1)
  - Pneumococcal sepsis [Recovered/Resolved]

NARRATIVE: CASE EVENT DATE: 20250301
